FAERS Safety Report 9364776 (Version 1)
Quarter: 2013Q2

REPORT INFORMATION
  Report Type: Spontaneous
  Country: US (occurrence: US)
  Receive Date: 20130624
  Receipt Date: 20130624
  Transmission Date: 20140414
  Serious: Yes (Other)
  Sender: FDA-Public Use
  Company Number: US-BAYER-2013-075065

PATIENT
  Age: 72 Year
  Sex: Female
  Weight: 79 kg

DRUGS (1)
  1. BAYER GENUINE ASPIRIN ORIGINAL STRENGTH [Suspect]
     Indication: THROMBOSIS
     Dosage: UNK
     Route: 048
     Dates: end: 201306

REACTIONS (3)
  - Throat tightness [Recovered/Resolved]
  - Off label use [None]
  - Incorrect drug administration duration [None]
